FAERS Safety Report 15680533 (Version 1)
Quarter: 2018Q4

REPORT INFORMATION
  Report Type: Spontaneous
  Country: US (occurrence: US)
  Receive Date: 20181203
  Receipt Date: 20181203
  Transmission Date: 20190205
  Serious: No
  Sender: FDA-Public Use
  Company Number: US-SHIRE-US201846328

PATIENT
  Sex: Female

DRUGS (1)
  1. VPRIV [Suspect]
     Active Substance: VELAGLUCERASE ALFA
     Indication: GAUCHER^S DISEASE
     Dosage: 7 DF (VIALS), 2X A MONTH
     Route: 042
     Dates: start: 20100921

REACTIONS (3)
  - Oropharyngeal pain [Not Recovered/Not Resolved]
  - Lacrimation increased [Unknown]
  - Cough [Not Recovered/Not Resolved]
